FAERS Safety Report 14120479 (Version 1)
Quarter: 2017Q4

REPORT INFORMATION
  Report Type: Spontaneous
  Country: BG (occurrence: BG)
  Receive Date: 20171024
  Receipt Date: 20171024
  Transmission Date: 20180321
  Serious: Yes (Other)
  Sender: FDA-Public Use
  Company Number: BG-MYLANLABS-2017M1065725

PATIENT
  Sex: Female

DRUGS (3)
  1. PEGFILGRASTIM [Concomitant]
     Active Substance: PEGFILGRASTIM
     Indication: PRODUCT USED FOR UNKNOWN INDICATION
     Dosage: UNK
     Route: 065
  2. FLUOROURACIL. [Suspect]
     Active Substance: FLUOROURACIL
     Indication: AMELOBLASTOMA
     Dosage: 2 CYCLES AT A DOSE OF 1000 MG/M2/DAY ON DAY 1-4 (3 WEEKS)
     Route: 065
  3. CISPLATIN. [Suspect]
     Active Substance: CISPLATIN
     Indication: AMELOBLASTOMA
     Dosage: 2 CYCLES AT A DOSE OF 100 MG/M2 ON DAY 1
     Route: 065

REACTIONS (1)
  - Bone marrow failure [Unknown]
